FAERS Safety Report 18218262 (Version 1)
Quarter: 2020Q3

REPORT INFORMATION
  Report Type: Spontaneous
  Country: US (occurrence: US)
  Receive Date: 20200831
  Receipt Date: 20200831
  Transmission Date: 20201103
  Serious: No
  Sender: FDA-Public Use
  Company Number: None

PATIENT
  Sex: Female

DRUGS (1)
  1. GILENYA [Suspect]
     Active Substance: FINGOLIMOD HYDROCHLORIDE
     Indication: MULTIPLE SCLEROSIS
     Route: 048
     Dates: start: 201711

REACTIONS (6)
  - Pain in extremity [None]
  - Road traffic accident [None]
  - Apraxia [None]
  - Hypoaesthesia [None]
  - Vision blurred [None]
  - Neuralgia [None]
